FAERS Safety Report 9370459 (Version 3)
Quarter: 2014Q2

REPORT INFORMATION
  Report Type: Spontaneous
  Country: US (occurrence: US)
  Receive Date: 20130626
  Receipt Date: 20140402
  Transmission Date: 20141212
  Serious: Yes (Hospitalization)
  Sender: FDA-Public Use
  Company Number: US-GLAXOSMITHKLINE-A1028353A

PATIENT
  Age: 55 Year
  Sex: Male
  Weight: 117.3 kg

DRUGS (2)
  1. AVANDAMET [Suspect]
     Indication: TYPE 2 DIABETES MELLITUS
     Route: 048
     Dates: start: 200409, end: 200701
  2. AVANDIA [Suspect]
     Indication: DIABETES MELLITUS
     Dosage: 4MG UNKNOWN
     Route: 048
     Dates: start: 200505, end: 200610

REACTIONS (3)
  - Myocardial infarction [Unknown]
  - Angina pectoris [Unknown]
  - Weight increased [Unknown]
